FAERS Safety Report 8450847 (Version 4)
Quarter: 2012Q4

REPORT INFORMATION
  Report Type: 
  Country: DE (occurrence: DE)
  Receive Date: 20120309
  Receipt Date: 20121018
  Transmission Date: 20130627
  Serious: Yes (Death, Hospitalization)
  Sender: FDA-Public Use
  Company Number: DE-ABBOTT-12P-062-0913219-00

PATIENT
  Age: 49 None
  Sex: Male

DRUGS (1)
  1. HUMIRA 40 MG/ 0.8 ML PRE-FILLED SYRINGE [Suspect]
     Indication: PRODUCT USED FOR UNKNOWN INDICATION
     Route: 058
     Dates: start: 20091124

REACTIONS (15)
  - Enterocolitis [Fatal]
  - Megacolon [Fatal]
  - Acute myocardial infarction [Fatal]
  - Oral candidiasis [Fatal]
  - Epilepsy [Fatal]
  - Nausea [Unknown]
  - Vomiting [Unknown]
  - Diarrhoea [Recovered/Resolved]
  - General physical health deterioration [Unknown]
  - Weight decreased [Unknown]
  - Depression [Unknown]
  - Tongue dry [Unknown]
  - Dry throat [Unknown]
  - Pharyngeal erythema [Unknown]
  - Dizziness [Unknown]
